FAERS Safety Report 4704934-X (Version None)
Quarter: 2005Q3

REPORT INFORMATION
  Report Type: 
  Country: None (occurrence: None)
  Receive Date: 20050701
  Receipt Date: 20050629
  Transmission Date: 20060218
  Serious: Yes (Death, Other)
  Sender: FDA-Public Use
  Company Number: BW-BRISTOL-MYERS SQUIBB COMPANY-13019724

PATIENT
  Sex: Female

DRUGS (3)
  1. STAVUDINE [Suspect]
     Indication: HIV INFECTION
     Dates: start: 20050217, end: 20050317
  2. LAMIVUDINE [Suspect]
     Indication: HIV INFECTION
     Dates: start: 20050217, end: 20050317
  3. NEVIRAPINE [Suspect]
     Indication: HIV INFECTION
     Dates: start: 20050217, end: 20050317

REACTIONS (2)
  - GASTROENTERITIS [None]
  - HEPATOTOXICITY [None]
